FAERS Safety Report 4953015-9 (Version None)
Quarter: 2006Q1

REPORT INFORMATION
  Report Type: 
  Country: None (occurrence: None)
  Receive Date: 20060324
  Receipt Date: 20060215
  Transmission Date: 20060701
  Serious: Yes (Death)
  Sender: FDA-Public Use
  Company Number: JP-JPN-A200600655

PATIENT
  Age: 80 Year
  Sex: Female
  Weight: 38 kg

DRUGS (10)
  1. MODACIN [Suspect]
     Indication: URINARY TRACT INFECTION
     Dosage: 1G PER DAY
     Route: 042
     Dates: start: 20060126, end: 20060205
  2. TAMIFLU [Suspect]
     Indication: INFLUENZA
     Dosage: 1CAP TWICE PER DAY
     Route: 048
     Dates: start: 20060128, end: 20060201
  3. VEGETAMIN A [Suspect]
     Dosage: 1TAB TWICE PER DAY
     Route: 048
     Dates: start: 20051231, end: 20060213
  4. NORVASC [Suspect]
     Indication: HYPERTENSION
     Dosage: 1TAB PER DAY
     Route: 048
     Dates: start: 20060117, end: 20060213
  5. CALONAL [Suspect]
     Route: 048
     Dates: start: 20060128
  6. BUFFERIN [Concomitant]
     Indication: ANGINA PECTORIS
     Dosage: 81MG PER DAY
     Route: 048
     Dates: start: 20051231, end: 20060213
  7. LASIX [Concomitant]
     Indication: CARDIAC FAILURE CHRONIC
     Dosage: 1TAB PER DAY
     Route: 048
     Dates: start: 20051231, end: 20060213
  8. ALDACTONE [Concomitant]
     Indication: CARDIAC FAILURE CHRONIC
     Dosage: 1TAB PER DAY
     Route: 048
     Dates: start: 20051231, end: 20060213
  9. MICARDIS [Concomitant]
     Indication: HYPERTENSION
     Dosage: 1TAB PER DAY
     Route: 048
     Dates: start: 20051231, end: 20060213
  10. PENICILLIN [Concomitant]
     Dosage: 2G PER DAY
     Route: 042
     Dates: start: 20060209, end: 20060214

REACTIONS (3)
  - DISSEMINATED INTRAVASCULAR COAGULATION [None]
  - GENERALISED OEDEMA [None]
  - TOXIC EPIDERMAL NECROLYSIS [None]
